FAERS Safety Report 9690266 (Version 1)
Quarter: 2013Q4

REPORT INFORMATION
  Report Type: Report from Study
  Country: CA (occurrence: CA)
  Receive Date: 20131115
  Receipt Date: 20131115
  Transmission Date: 20140711
  Serious: Yes (Hospitalization)
  Sender: FDA-Public Use
  Company Number: CA-MILLENNIUM PHARMACEUTICALS, INC.-2013JNJ000994

PATIENT
  Sex: 0

DRUGS (8)
  1. VELCADE [Suspect]
     Indication: AMYLOIDOSIS
     Dosage: 1 MG/M2, UNK
     Route: 065
     Dates: start: 201301, end: 201305
  2. CYCLOPHOSPHAMIDE [Concomitant]
     Indication: AMYLOIDOSIS
     Dosage: 400 MG, UNK
     Route: 065
     Dates: end: 201305
  3. DEXAMETHASONE [Concomitant]
     Indication: AMYLOIDOSIS
     Dosage: 20 MG, UNK
     Route: 065
  4. BISOPROLOL [Concomitant]
     Dosage: 2.5 MG, UNK
  5. CANDESARTAN [Concomitant]
     Dosage: 8 MG, UNK
  6. PANTOLOC                           /01263204/ [Concomitant]
     Dosage: 4 MG, UNK
  7. SPIRIVA [Concomitant]
     Dosage: UNK
  8. ADVAIR [Concomitant]
     Dosage: 1 UNK, UNK

REACTIONS (2)
  - Pulmonary amyloidosis [Unknown]
  - Off label use [Unknown]
